FAERS Safety Report 25645881 (Version 1)
Quarter: 2025Q3

REPORT INFORMATION
  Report Type: Spontaneous
  Country: US (occurrence: None)
  Receive Date: 20250804
  Receipt Date: 20250804
  Transmission Date: 20251020
  Serious: Yes (Life-Threatening, Other)
  Sender: FDA-CTU
  Company Number: None

PATIENT
  Age: 58 Year
  Sex: Female
  Weight: 94.5 kg

DRUGS (9)
  1. WEGOVY [Suspect]
     Active Substance: SEMAGLUTIDE
     Indication: Obesity
     Dates: start: 20250209, end: 20250804
  2. SEROQUEL [Concomitant]
     Active Substance: QUETIAPINE FUMARATE
  3. Lamictal 300 mg [Concomitant]
  4. Caplyta 45mg [Concomitant]
  5. LUNESTA [Concomitant]
     Active Substance: ESZOPICLONE
  6. Klonopin 2 mg [Concomitant]
  7. Duloxatine DR 60 mg x2 [Concomitant]
  8. ATORVASTATIN [Concomitant]
     Active Substance: ATORVASTATIN
  9. Women^s multivitamin with iron Calcium Fiber [Concomitant]

REACTIONS (6)
  - Suicidal ideation [None]
  - Irritability [None]
  - Mood altered [None]
  - Heart rate increased [None]
  - Anxiety [None]
  - Fear [None]

NARRATIVE: CASE EVENT DATE: 20250804
